FAERS Safety Report 18249316 (Version 1)
Quarter: 2020Q3

REPORT INFORMATION
  Report Type: Spontaneous
  Country: IT (occurrence: IT)
  Receive Date: 20200909
  Receipt Date: 20200909
  Transmission Date: 20201103
  Serious: Yes (Hospitalization)
  Sender: FDA-Public Use
  Company Number: IT-ALLERGAN-2034069US

PATIENT
  Sex: Male

DRUGS (9)
  1. XYDALBA [Suspect]
     Active Substance: DALBAVANCIN HYDROCHLORIDE
     Indication: PRODUCT USED FOR UNKNOWN INDICATION
  2. LAROXYL [Concomitant]
     Active Substance: AMITRIPTYLINE HYDROCHLORIDE
  3. TOLEP [Concomitant]
     Active Substance: OXCARBAZEPINE
  4. MORPHINE [Concomitant]
     Active Substance: MORPHINE
  5. MOVICOL [Concomitant]
     Active Substance: POLYETHYLENE GLYCOL 3350\POTASSIUM CHLORIDE\SODIUM BICARBONATE\SODIUM CHLORIDE
  6. OMNIC [Concomitant]
     Active Substance: TAMSULOSIN HYDROCHLORIDE
  7. HEPARIN [Concomitant]
     Active Substance: HEPARIN SODIUM
  8. PREGABALIN. [Concomitant]
     Active Substance: PREGABALIN
  9. SIRDALUD [Concomitant]
     Active Substance: TIZANIDINE

REACTIONS (2)
  - Erythema [Not Recovered/Not Resolved]
  - Pyrexia [Not Recovered/Not Resolved]

NARRATIVE: CASE EVENT DATE: 20200528
